FAERS Safety Report 8814618 (Version 1)
Quarter: 2012Q4

REPORT INFORMATION
  Report Type: Spontaneous
  Country: IT (occurrence: None)
  Receive Date: 20120926
  Receipt Date: 20120926
  Transmission Date: 20130627
  Serious: Yes (Hospitalization)
  Sender: FDA-Public Use
  Company Number: DSM-2012-01005

PATIENT
  Age: 78 Year
  Sex: Female

DRUGS (9)
  1. OLMESARTAN MEDOXOMIL, AMLODIPINE BESILATE [Suspect]
     Indication: HYPERTENSION ARTERIAL
     Dosage: 20/5 mg, Oral
     Route: 048
     Dates: start: 20120228, end: 20120906
  2. DOXAZOSIN MESYLATE [Suspect]
     Indication: HYPERTENSION ARTERIAL
     Route: 048
     Dates: start: 20080101, end: 20120905
  3. TENORMIN [Suspect]
     Indication: HYPERTENSION ARTERIAL
     Route: 048
     Dates: start: 20040101
  4. LASIX [Suspect]
     Indication: HYPERTENSION ARTERIAL
     Route: 048
     Dates: start: 20080101
  5. ALDACTONE [Suspect]
     Indication: HYPERTENSION ARTERIAL
     Route: 048
     Dates: start: 20090101
  6. SIMVASTATIN [Concomitant]
  7. CARDIOASPIRIN (ACETYLSALICYLIC ACID) (ACETYLSALICYLIC ACID) [Concomitant]
  8. FOSAVANCE (COLECALCIFEROL, ALENDRONATE SODIUM) (COLECALCIFEROL, ALENDRONATE SODIUM) [Concomitant]
  9. CALCIO (CALCIUM CARBONATE) (CALCIUM CARBONATE) [Concomitant]

REACTIONS (4)
  - Hypotension [None]
  - Blood potassium increased [None]
  - Blood urea increased [None]
  - Blood creatinine increased [None]
